FAERS Safety Report 23387235 (Version 1)
Quarter: 2024Q1

REPORT INFORMATION
  Report Type: Spontaneous
  Country: US (occurrence: US)
  Receive Date: 20240110
  Receipt Date: 20240110
  Transmission Date: 20240410
  Serious: No
  Sender: FDA-Public Use
  Company Number: US-BAYER-2024A003420

PATIENT
  Age: 52 Year
  Sex: Male

DRUGS (1)
  1. ASTEPRO [Suspect]
     Active Substance: AZELASTINE HYDROCHLORIDE
     Indication: Acute sinusitis
     Dosage: 2 SPRAY IN EACH NOSTRIL
     Route: 045
     Dates: start: 20240102, end: 20240107

REACTIONS (2)
  - Paranasal sinus discomfort [None]
  - Off label use [None]

NARRATIVE: CASE EVENT DATE: 20240102
